FAERS Safety Report 8568884-3 (Version None)
Quarter: 2012Q3

REPORT INFORMATION
  Report Type: 
  Country: None (occurrence: None)
  Receive Date: 20120803
  Receipt Date: 20120209
  Transmission Date: 20120928
  Serious: No
  Sender: FDA-Public Use
  Company Number: US-ABBOTT-12P-163-0903018-00

PATIENT
  Sex: Female
  Weight: 79.45 kg

DRUGS (6)
  1. ASCORBIC ACID [Concomitant]
     Indication: PRODUCT USED FOR UNKNOWN INDICATION
  2. NIASPAN [Suspect]
  3. NIASPAN [Suspect]
     Dates: start: 20111001
  4. NIASPAN [Suspect]
     Indication: TOTAL CHOLESTEROL/HDL RATIO ABNORMAL
     Dates: start: 20100701
  5. VITAMIN D [Concomitant]
     Indication: PRODUCT USED FOR UNKNOWN INDICATION
  6. NIASPAN [Suspect]

REACTIONS (4)
  - SKIN WARM [None]
  - TOTAL CHOLESTEROL/HDL RATIO ABNORMAL [None]
  - FLUSHING [None]
  - SKIN BURNING SENSATION [None]
